FAERS Safety Report 8615803-7 (Version None)
Quarter: 2012Q3

REPORT INFORMATION
  Report Type: 
  Country: None (occurrence: None)
  Receive Date: 20120823
  Receipt Date: 20120810
  Transmission Date: 20120928
  Serious: Yes (Hospitalization, Other)
  Sender: FDA-Public Use
  Company Number: US-BAXTER-2012BAX013602

PATIENT
  Sex: Male

DRUGS (5)
  1. DIANEAL PD-2 W/ DEXTROSE 1.5% [Suspect]
     Indication: PERITONEAL DIALYSIS
     Route: 033
     Dates: start: 20110816
  2. DIANEAL PD-2 W/ DEXTROSE 1.5% [Suspect]
     Route: 033
     Dates: start: 20110816
  3. DIANEAL PD-2 W/ DEXTROSE 1.5% [Suspect]
     Indication: PERITONEAL DIALYSIS
     Route: 033
     Dates: start: 20110816
  4. DIANEAL PD-2 W/ DEXTROSE 1.5% [Suspect]
     Route: 033
     Dates: start: 20110816
  5. COUMADIN [Concomitant]
     Route: 065

REACTIONS (3)
  - PNEUMONIA [None]
  - PULMONARY EMBOLISM [None]
  - DEEP VEIN THROMBOSIS [None]
